FAERS Safety Report 9839146 (Version 1)
Quarter: 2014Q1

REPORT INFORMATION
  Report Type: Spontaneous
  Country: GB (occurrence: GB)
  Receive Date: 20140123
  Receipt Date: 20140123
  Transmission Date: 20141002
  Serious: Yes (Other)
  Sender: FDA-Public Use
  Company Number: PHHY2014GB005098

PATIENT
  Age: 47 Year
  Sex: Female
  Weight: 72 kg

DRUGS (5)
  1. AMOXICILLIN [Suspect]
     Indication: URINARY TRACT INFECTION
     Dosage: 500 MG, UNK
     Route: 048
     Dates: start: 20131227, end: 20131227
  2. BETAHISTINE [Concomitant]
     Indication: MENIERE^S DISEASE
     Dosage: 16 MG, TID
     Route: 048
  3. OXYCODONE [Concomitant]
     Indication: PAIN
     Dosage: 35 MG, UNK
     Route: 058
     Dates: start: 20131206
  4. LEVOMEPROMAZINE [Concomitant]
     Indication: NAUSEA
     Dosage: 6.25 MG, UNK
     Route: 058
     Dates: start: 20131206
  5. ORAMORPH [Concomitant]
     Indication: PAIN
     Route: 048
     Dates: start: 20131206

REACTIONS (1)
  - Headache [Recovered/Resolved]
